FAERS Safety Report 9302736 (Version 2)
Quarter: 2013Q3

REPORT INFORMATION
  Report Type: Report from Study
  Country: US (occurrence: US)
  Receive Date: 20130522
  Receipt Date: 20130719
  Transmission Date: 20140515
  Serious: Yes (Hospitalization)
  Sender: FDA-Public Use
  Company Number: PHEH2013US011058

PATIENT
  Age: 52 Year
  Sex: Female

DRUGS (3)
  1. EXTAVIA [Suspect]
     Indication: MULTIPLE SCLEROSIS
     Dosage: 0.3 MG, QOD
     Route: 058
  2. EXTAVIA [Suspect]
     Dosage: 0.125 MG
     Route: 058
     Dates: start: 20130701
  3. EXTAVIA [Suspect]
     Dosage: 0.062 MG, QOD
     Route: 058

REACTIONS (7)
  - Heart rate decreased [Unknown]
  - Central nervous system lesion [Unknown]
  - Influenza like illness [Recovering/Resolving]
  - Arthralgia [Recovering/Resolving]
  - Chills [Recovering/Resolving]
  - Pain [Recovering/Resolving]
  - Incorrect dose administered [Recovered/Resolved]
